FAERS Safety Report 11858358 (Version 1)
Quarter: 2015Q4

REPORT INFORMATION
  Report Type: Report from Study
  Country: US (occurrence: US)
  Receive Date: 20151222
  Receipt Date: 20151222
  Transmission Date: 20160305
  Serious: Yes (Death)
  Sender: FDA-Public Use
  Company Number: US-JNJFOC-20150501887

PATIENT
  Sex: Female
  Weight: 26 kg

DRUGS (12)
  1. LEVETIRACETAM. [Concomitant]
     Active Substance: LEVETIRACETAM
     Route: 065
  2. GLYCOPYRROLATE. [Concomitant]
     Active Substance: GLYCOPYRROLATE
     Route: 065
  3. REMICADE [Suspect]
     Active Substance: INFLIXIMAB
     Indication: INFLAMMATORY BOWEL DISEASE
     Route: 042
  4. PEPTAMEN [Concomitant]
     Route: 065
  5. LANSOPRAZOLE. [Concomitant]
     Active Substance: LANSOPRAZOLE
     Route: 065
  6. DIAZEPAM. [Concomitant]
     Active Substance: DIAZEPAM
     Route: 065
  7. RANITIDINE [Concomitant]
     Active Substance: RANITIDINE\RANITIDINE HYDROCHLORIDE
     Route: 065
  8. POLYETHYLENE GLYCOL [Concomitant]
     Active Substance: POLYETHYLENE GLYCOLS
     Route: 065
  9. CLOBAZAM [Concomitant]
     Active Substance: CLOBAZAM
     Route: 065
  10. 5-ASA [Concomitant]
     Active Substance: MESALAMINE
     Route: 048
  11. CLORAZEPATE [Concomitant]
     Active Substance: CLORAZEPATE DIPOTASSIUM
     Route: 065
  12. ZINC [Concomitant]
     Active Substance: ZINC\ZINC CHLORIDE
     Route: 065

REACTIONS (1)
  - Death [Fatal]
